FAERS Safety Report 5201136-8 (Version None)
Quarter: 2007Q1

REPORT INFORMATION
  Report Type: 
  Country: None (occurrence: None)
  Receive Date: 20070103
  Receipt Date: 20061208
  Transmission Date: 20070707
  Serious: Yes (Hospitalization)
  Sender: FDA-Public Use
  Company Number: 2006P1000579

PATIENT
  Age: 92 Year
  Sex: Male

DRUGS (6)
  1. NICARDIPINE HYDROCHLORIDE [Suspect]
     Indication: ESSENTIAL HYPERTENSION
     Dosage: 50 MG; QD; PO
     Route: 048
     Dates: end: 20061017
  2. PLANTAGO OVATA [Concomitant]
  3. LACTULOSE [Concomitant]
  4. FUROSEMIDE [Concomitant]
  5. TAMSULOSIN HCL [Concomitant]
  6. CODEINE W/PARACETAMOL [Concomitant]

REACTIONS (4)
  - GAIT DISTURBANCE [None]
  - NEUROPATHY PERIPHERAL [None]
  - POLYNEUROPATHY [None]
  - SPINAL OSTEOARTHRITIS [None]
